FAERS Safety Report 8521797-5 (Version None)
Quarter: 2012Q3

REPORT INFORMATION
  Report Type: 
  Country: None (occurrence: None)
  Receive Date: 20120719
  Receipt Date: 20120423
  Transmission Date: 20120928
  Serious: Yes (Other)
  Sender: FDA-Public Use
  Company Number: US-BRISTOL-MYERS SQUIBB COMPANY-16447153

PATIENT
  Age: 85 Year
  Sex: Male

DRUGS (7)
  1. METFORMIN HCL [Concomitant]
  2. GLIPIZIDE [Concomitant]
  3. VITAMIN D [Concomitant]
     Dosage: 1DF=4000 UNITS
  4. TIMOLOL MALEATE [Concomitant]
  5. YERVOY [Suspect]
     Indication: MALIGNANT MELANOMA
     Dosage: LAST:NOV11
     Route: 042
     Dates: start: 20110921, end: 20111221
  6. QUINAPRIL [Concomitant]
  7. MAGNESIUM OXIDE [Concomitant]

REACTIONS (2)
  - NEUROPATHY PERIPHERAL [None]
  - NEOPLASM MALIGNANT [None]
